FAERS Safety Report 4543975-2 (Version None)
Quarter: 2005Q1

REPORT INFORMATION
  Report Type: 
  Country: None (occurrence: None)
  Receive Date: 20050103
  Receipt Date: 20030702
  Transmission Date: 20050727
  Serious: Yes (Hospitalization)
  Sender: FDA-Public Use
  Company Number: GXKR2003GB00494

PATIENT
  Age: 85 Year
  Sex: Male

DRUGS (2)
  1. ALLOPURINOL (NGX) (ALLOPURINOL) [Suspect]
     Indication: GOUT
     Dosage: ORAL
     Route: 048
  2. ACETYLSALICYLIC ACID (ASPIRIN) (ACETYLSALICYLIC ACID) [Concomitant]

REACTIONS (1)
  - HEPATITIS [None]
